FAERS Safety Report 7556308 (Version 2)
Quarter: 2012Q4

REPORT INFORMATION
  Report Type: 
  Country: US (occurrence: US)
  Receive Date: 20100827
  Receipt Date: 20121012
  Transmission Date: 20130627
  Serious: Yes (Hospitalization)
  Sender: FDA-Public Use
  Company Number: US-BAYER-201031559NA

PATIENT
  Age: 42 Year
  Sex: Female
  Weight: 98.41 kg

DRUGS (1)
  1. YAZ [Suspect]
     Route: 048
     Dates: start: 2007, end: 20100722

REACTIONS (2)
  - Thrombosis [None]
  - Deep vein thrombosis [None]
